FAERS Safety Report 6971670-9 (Version None)
Quarter: 2010Q3

REPORT INFORMATION
  Report Type: 
  Country: None (occurrence: None)
  Receive Date: 20100908
  Receipt Date: 20100902
  Transmission Date: 20110219
  Serious: Yes (Death, Life-Threatening, Hospitalization, Other)
  Sender: FDA-Public Use
  Company Number: PHHO2010US06007

PATIENT
  Sex: Male
  Weight: 87.075 kg

DRUGS (16)
  1. AFINITOR [Suspect]
     Indication: METASTATIC MALIGNANT MELANOMA
     Dosage: 5MG
     Route: 048
     Dates: start: 20100318, end: 20100415
  2. PACLITAXEL [Suspect]
     Indication: METASTATIC MALIGNANT MELANOMA
     Dosage: 360MG
     Route: 042
     Dates: start: 20100318, end: 20100408
  3. CARBOPLATIN [Suspect]
     Indication: METASTATIC MALIGNANT MELANOMA
     Dosage: 1039MG
     Route: 042
     Dates: start: 20100318, end: 20100408
  4. NEULASTA [Suspect]
  5. ENALAPRIL MALEATE [Suspect]
     Indication: CARDIAC DISORDER
  6. COMPAZINE [Suspect]
  7. METOPROLOL TARTRATE [Concomitant]
     Indication: BLOOD PRESSURE
  8. DIGOXIN [Concomitant]
     Indication: ATRIAL FIBRILLATION
  9. TRICOR [Concomitant]
     Indication: BLOOD CHOLESTEROL
  10. METFORMIN HCL [Concomitant]
     Indication: DIABETES MELLITUS
  11. SIMVASTATIN [Concomitant]
     Indication: BLOOD CHOLESTEROL
  12. GLYBURIDE [Concomitant]
     Indication: DIABETES MELLITUS
  13. OXYCODONE HCL [Concomitant]
  14. ASPIRIN [Concomitant]
  15. JANUVIA [Concomitant]
     Indication: DIABETES MELLITUS
  16. NIACIN [Concomitant]

REACTIONS (11)
  - ANGIOEDEMA [None]
  - DEATH [None]
  - HYPERGLYCAEMIA [None]
  - HYPERLIPIDAEMIA [None]
  - LIP SWELLING [None]
  - MALIGNANT NEOPLASM PROGRESSION [None]
  - PERFORMANCE STATUS DECREASED [None]
  - STRIDOR [None]
  - SWOLLEN TONGUE [None]
  - TONGUE OEDEMA [None]
  - VOMITING [None]
